FAERS Safety Report 10254875 (Version 1)
Quarter: 2014Q2

REPORT INFORMATION
  Report Type: Spontaneous
  Country: BR (occurrence: BR)
  Receive Date: 20140624
  Receipt Date: 20140624
  Transmission Date: 20141212
  Serious: Yes (Other)
  Sender: FDA-Public Use
  Company Number: BR-SHIRE-BR201403104

PATIENT
  Age: 41 Year
  Sex: Female
  Weight: 50 kg

DRUGS (2)
  1. VENVANSE [Suspect]
     Indication: ATTENTION DEFICIT/HYPERACTIVITY DISORDER
     Dosage: 50 MG, UNKNOWN
     Route: 048
     Dates: start: 201401
  2. DIPYRONE [Suspect]
     Indication: HEADACHE
     Dosage: UNK, UNKNOWN
     Route: 065

REACTIONS (11)
  - Hypersensitivity [Not Recovered/Not Resolved]
  - Therapeutic response changed [Unknown]
  - Pruritus [Unknown]
  - Erythema [Unknown]
  - Lacrimation increased [Unknown]
  - Throat irritation [Unknown]
  - Dysphonia [Unknown]
  - Sneezing [Unknown]
  - Rash macular [Unknown]
  - Pyrexia [Unknown]
  - Headache [Unknown]
